FAERS Safety Report 4375713-0 (Version None)
Quarter: 2004Q2

REPORT INFORMATION
  Report Type: 
  Country: None (occurrence: None)
  Receive Date: 20040607
  Receipt Date: 20040527
  Transmission Date: 20050107
  Serious: Yes (Death, Hospitalization)
  Sender: FDA-Public Use
  Company Number: 6009034

PATIENT
  Age: 76 Year
  Sex: Male

DRUGS (6)
  1. BISOPROLOL (CHF) (TABLETS) (BISOPROLOL) [Suspect]
     Indication: CARDIAC FAILURE CONGESTIVE
     Dosage: (1 IN 1 D) ORAL
     Route: 048
     Dates: start: 20040205
  2. ENALAPRIL 5 MG TABLETS (ENALAPRIL) [Suspect]
     Indication: CARDIAC FAILURE CONGESTIVE
     Dosage: 10 MG (5 MG, 2 IN 1 D) ORAL
     Route: 048
     Dates: start: 20040424
  3. FUROSEMIDE [Concomitant]
  4. ASPEGIC 1000 [Concomitant]
  5. OMEPRAZOLE [Concomitant]
  6. INSULATARD NPH HUMAN [Concomitant]

REACTIONS (8)
  - BRONCHOPNEUMONIA [None]
  - CARDIAC FAILURE [None]
  - CARDIOGENIC SHOCK [None]
  - DYSPNOEA EXERTIONAL [None]
  - DYSPNOEA PAROXYSMAL NOCTURNAL [None]
  - HEPATOMEGALY [None]
  - HYPOTENSION [None]
  - ORTHOPNOEA [None]
